FAERS Safety Report 10937250 (Version 2)
Quarter: 2015Q2

REPORT INFORMATION
  Report Type: Spontaneous
  Country: US (occurrence: US)
  Receive Date: 20150321
  Receipt Date: 20150525
  Transmission Date: 20150821
  Serious: Yes (Hospitalization, Other)
  Sender: FDA-Public Use
  Company Number: US-JNJFOC-20131105290

PATIENT
  Sex: Female
  Weight: 97.52 kg

DRUGS (12)
  1. TOPAMAX [Suspect]
     Active Substance: TOPIRAMATE
     Indication: SEIZURE
     Route: 048
     Dates: end: 201309
  2. TOPAMAX [Suspect]
     Active Substance: TOPIRAMATE
     Indication: FRONTAL LOBE EPILEPSY
     Route: 048
     Dates: end: 201309
  3. LYRICA [Suspect]
     Active Substance: PREGABALIN
     Indication: FIBROMYALGIA
     Dosage: 75 MG IN THE MORNING AND TWO CAPSULES 75 MG (150 MG) AT NIGHT
     Route: 048
     Dates: start: 201309
  4. TOPAMAX [Suspect]
     Active Substance: TOPIRAMATE
     Indication: FRONTAL LOBE EPILEPSY
     Route: 048
     Dates: start: 200612
  5. TOPAMAX [Suspect]
     Active Substance: TOPIRAMATE
     Indication: FRONTAL LOBE EPILEPSY
     Route: 048
  6. TOPAMAX [Suspect]
     Active Substance: TOPIRAMATE
     Indication: SEIZURE
     Route: 048
  7. KEPPRA [Suspect]
     Active Substance: LEVETIRACETAM
     Indication: FRONTAL LOBE EPILEPSY
     Route: 065
     Dates: start: 200612
  8. LYRICA [Suspect]
     Active Substance: PREGABALIN
     Indication: ADJUVANT THERAPY
     Dosage: 75 MG IN THE MORNING AND TWO CAPSULES 75 MG (150 MG) AT NIGHT
     Route: 048
     Dates: start: 201309
  9. TOPAMAX [Suspect]
     Active Substance: TOPIRAMATE
     Indication: SEIZURE
     Route: 048
     Dates: start: 200612
  10. KEPPRA [Suspect]
     Active Substance: LEVETIRACETAM
     Indication: SEIZURE
     Route: 065
     Dates: start: 200612
  11. LYRICA [Suspect]
     Active Substance: PREGABALIN
     Indication: ADJUVANT THERAPY
     Route: 048
  12. LYRICA [Suspect]
     Active Substance: PREGABALIN
     Indication: FIBROMYALGIA
     Route: 048

REACTIONS (2)
  - Confusional state [Unknown]
  - Seizure [Unknown]
